FAERS Safety Report 12611335 (Version 4)
Quarter: 2018Q3

REPORT INFORMATION
  Report Type: Spontaneous
  Country: US (occurrence: US)
  Receive Date: 20160801
  Receipt Date: 20180918
  Transmission Date: 20181010
  Serious: Yes (Hospitalization)
  Sender: FDA-Public Use
  Company Number: US-DSJP-DSU-2016-125964

PATIENT

DRUGS (2)
  1. BENICAR HCT [Suspect]
     Active Substance: HYDROCHLOROTHIAZIDE\OLMESARTAN MEDOXOMIL
     Indication: BLOOD PRESSURE MEASUREMENT
     Dosage: 40?25MG
     Dates: start: 2004
  2. NEURONTIN [Concomitant]
     Active Substance: GABAPENTIN
     Indication: PRODUCT USED FOR UNKNOWN INDICATION
     Dosage: UNK

REACTIONS (9)
  - Diverticulum [Unknown]
  - Vitamin D deficiency [Unknown]
  - Rash [Unknown]
  - Cholecystitis chronic [Recovered/Resolved]
  - Sprue-like enteropathy [Not Recovered/Not Resolved]
  - Diverticulitis [Unknown]
  - Gastrooesophageal reflux disease [Recovered/Resolved]
  - Cholangitis [Recovered/Resolved]
  - Abdominal migraine [Unknown]

NARRATIVE: CASE EVENT DATE: 2007
